FAERS Safety Report 5790536-3 (Version None)
Quarter: 2008Q2

REPORT INFORMATION
  Report Type: 
  Country: None (occurrence: None)
  Receive Date: 20080626
  Receipt Date: 20080430
  Transmission Date: 20081010
  Serious: No
  Sender: FDA-Public Use
  Company Number: A0725567A

PATIENT
  Age: 49 Year
  Sex: Female

DRUGS (2)
  1. ALLI [Suspect]
     Dates: start: 20080422, end: 20080423
  2. MULTI-VITAMIN [Concomitant]

REACTIONS (8)
  - ABDOMINAL DISTENSION [None]
  - ABDOMINAL PAIN UPPER [None]
  - CHILLS [None]
  - DEFAECATION URGENCY [None]
  - FATIGUE [None]
  - FLATULENCE [None]
  - NAUSEA [None]
  - PYREXIA [None]
